FAERS Safety Report 12598715 (Version 1)
Quarter: 2016Q3

REPORT INFORMATION
  Report Type: Spontaneous
  Country: US (occurrence: US)
  Receive Date: 20160727
  Receipt Date: 20160727
  Transmission Date: 20161109
  Serious: No
  Sender: FDA-Public Use
  Company Number: US-MYLANLABS-2015M1035631

PATIENT
  Sex: Female

DRUGS (4)
  1. FISH OIL [Concomitant]
     Active Substance: FISH OIL
     Dosage: UNK
  2. MIRTAZAPINE TABLETS, USP [Suspect]
     Active Substance: MIRTAZAPINE
     Indication: OFF LABEL USE
  3. VITAMIN C [Concomitant]
     Active Substance: ASCORBIC ACID
     Dosage: UNK
  4. MIRTAZAPINE TABLETS, USP [Suspect]
     Active Substance: MIRTAZAPINE
     Indication: INSOMNIA
     Dosage: 3.75 MG, HS
     Route: 048
     Dates: start: 2013

REACTIONS (2)
  - Ocular hyperaemia [Not Recovered/Not Resolved]
  - Eye swelling [Not Recovered/Not Resolved]

NARRATIVE: CASE EVENT DATE: 201504
